FAERS Safety Report 23477073 (Version 1)
Quarter: 2024Q1

REPORT INFORMATION
  Report Type: Report from Study
  Country: US (occurrence: US)
  Receive Date: 20240204
  Receipt Date: 20240204
  Transmission Date: 20240410
  Serious: No
  Sender: FDA-Public Use
  Company Number: US-EXELIXIS-CABO-23065111

PATIENT
  Age: 54 Year
  Sex: Male

DRUGS (4)
  1. CABOMETYX [Suspect]
     Active Substance: CABOZANTINIB S-MALATE
     Indication: Renal cancer
     Dosage: 40 MG, QD
     Route: 048
  2. CABOMETYX [Suspect]
     Active Substance: CABOZANTINIB S-MALATE
     Dosage: 2 DOSES OF 40 MG (80MG TOTAL)
     Route: 048
     Dates: start: 20230704
  3. CABOMETYX [Suspect]
     Active Substance: CABOZANTINIB S-MALATE
     Dosage: 40 MG, QD
     Route: 048
     Dates: start: 202307
  4. PEPCID [Suspect]
     Active Substance: FAMOTIDINE
     Indication: Dyspepsia
     Dosage: UNK

REACTIONS (18)
  - Skin lesion [Unknown]
  - Pain of skin [Unknown]
  - Skin discolouration [Not Recovered/Not Resolved]
  - Oropharyngeal pain [Unknown]
  - Hair disorder [Unknown]
  - Impaired healing [Unknown]
  - Swelling [Unknown]
  - Hair colour changes [Unknown]
  - Oral pain [Unknown]
  - Hypertension [Unknown]
  - Dyspepsia [Recovering/Resolving]
  - Dysphonia [Unknown]
  - Rash [Unknown]
  - Fatigue [Unknown]
  - Nausea [Unknown]
  - Taste disorder [Unknown]
  - Constipation [Unknown]
  - Accidental overdose [Unknown]

NARRATIVE: CASE EVENT DATE: 20230704
